FAERS Safety Report 7606455-3 (Version None)
Quarter: 2011Q3

REPORT INFORMATION
  Report Type: 
  Country: None (occurrence: None)
  Receive Date: 20110705
  Receipt Date: 20110614
  Transmission Date: 20111222
  Serious: Yes (Hospitalization)
  Sender: FDA-Public Use
  Company Number: B0728553A

PATIENT
  Age: 53 Year
  Sex: Male

DRUGS (2)
  1. PREDNISONE [Suspect]
     Indication: ASTHMA
  2. ALBUTEROL SULFATE [Suspect]
     Indication: ASTHMA

REACTIONS (2)
  - SUICIDAL IDEATION [None]
  - PSYCHOTIC DISORDER [None]
